FAERS Safety Report 18997588 (Version 5)
Quarter: 2021Q2

REPORT INFORMATION
  Report Type: Report from Study
  Country: US (occurrence: US)
  Receive Date: 20210311
  Receipt Date: 20210505
  Transmission Date: 20210717
  Serious: No
  Sender: FDA-Public Use
  Company Number: NVSC2021US055386

PATIENT
  Sex: Male
  Weight: 93.06 kg

DRUGS (3)
  1. ENTRESTO [Suspect]
     Active Substance: SACUBITRIL\VALSARTAN
     Dosage: UNK, BID (97/103 MG)
     Route: 048
  2. FUROSEMIDE. [Concomitant]
     Active Substance: FUROSEMIDE
     Indication: PRODUCT USED FOR UNKNOWN INDICATION
     Dosage: UNK
     Route: 065
  3. ENTRESTO [Suspect]
     Active Substance: SACUBITRIL\VALSARTAN
     Indication: PRODUCT USED FOR UNKNOWN INDICATION
     Dosage: 100 MG, BID (49/51 MG)
     Route: 048
     Dates: start: 20210226

REACTIONS (11)
  - Joint swelling [Unknown]
  - Gait disturbance [Unknown]
  - Muscular weakness [Unknown]
  - Productive cough [Unknown]
  - Hypersomnia [Unknown]
  - Hypotension [Unknown]
  - Cough [Unknown]
  - Weight increased [Unknown]
  - Product dose omission issue [Unknown]
  - Hypertension [Unknown]
  - Fatigue [Unknown]
